FAERS Safety Report 19956521 (Version 7)
Quarter: 2022Q1

REPORT INFORMATION
  Report Type: Report from Study
  Country: IL (occurrence: None)
  Receive Date: 20211014
  Receipt Date: 20220129
  Transmission Date: 20220423
  Serious: Yes (Death, Hospitalization)
  Sender: FDA-Public Use
  Company Number: IL-ROCHE-2931519

PATIENT
  Age: 72 Year
  Sex: Female
  Weight: 75 kg

DRUGS (14)
  1. ATEZOLIZUMAB [Suspect]
     Active Substance: ATEZOLIZUMAB
     Indication: Hepatocellular carcinoma
     Dosage: ON 30/AUG/2021, MOST RECENT DOSE OF ATEZOLIZUMAB (1200 MG) WAS ADMINISTERED PRIOR TO SAE.
     Route: 041
     Dates: start: 20210405
  2. BEVACIZUMAB [Suspect]
     Active Substance: BEVACIZUMAB
     Indication: Hepatocellular carcinoma
     Dosage: ON 05/APR/2021, MOST RECENT DOSE OF BEVACIZUMAB (1125 MG) WAS ADMINISTERED PRIOR TO SAE.
     Route: 042
     Dates: start: 20210405
  3. TOCILIZUMAB [Suspect]
     Active Substance: TOCILIZUMAB
     Indication: Hepatocellular carcinoma
     Dosage: ON 30/AUG/2021, MOST RECENT DOSE OF TOCILIZUMAB (300 MG) WAS ADMINISTERED PRIOR TO SAE.
     Route: 042
     Dates: start: 20210405
  4. ASPIRIN [Concomitant]
     Active Substance: ASPIRIN
     Dates: start: 20210111
  5. ESOMEPRAZOLE [Concomitant]
     Active Substance: ESOMEPRAZOLE
     Dates: start: 20210111
  6. BASAGLAR KWIKPEN [Concomitant]
     Active Substance: INSULIN GLARGINE
     Indication: Diabetes mellitus
     Dates: start: 20190329
  7. NOVORAPID [Concomitant]
     Active Substance: INSULIN ASPART
     Indication: Diabetes mellitus
     Dates: start: 20190329
  8. CHOLECALCIFEROL [Concomitant]
     Active Substance: CHOLECALCIFEROL
     Indication: Prophylaxis
     Dates: start: 20150922
  9. PROPRANOLOL HYDROCHLORIDE [Concomitant]
     Active Substance: PROPRANOLOL HYDROCHLORIDE
     Indication: Hypertension
     Dates: start: 20210311
  10. VALSARTAN [Concomitant]
     Active Substance: VALSARTAN
     Indication: Hypertension
     Route: 048
     Dates: start: 20210416
  11. ATORVASTATIN [Concomitant]
     Active Substance: ATORVASTATIN
     Indication: Hyperlipidaemia
     Route: 048
     Dates: start: 20210416
  12. ENOXAPARIN SODIUM [Concomitant]
     Active Substance: ENOXAPARIN SODIUM
     Route: 058
     Dates: start: 20210526
  13. THIAMINE [Concomitant]
     Active Substance: THIAMINE
     Dates: start: 20210716
  14. VENLAFAXINE HYDROCHLORIDE [Concomitant]
     Active Substance: VENLAFAXINE HYDROCHLORIDE
     Route: 048
     Dates: start: 20210825

REACTIONS (2)
  - Subdural haemorrhage [Fatal]
  - Road traffic accident [Fatal]

NARRATIVE: CASE EVENT DATE: 20211006
